FAERS Safety Report 15354999 (Version 1)
Quarter: 2018Q3

REPORT INFORMATION
  Report Type: Spontaneous
  Country: US (occurrence: US)
  Receive Date: 20180830
  Receipt Date: 20180830
  Transmission Date: 20181010
  Serious: No
  Sender: FDA-Public Use
  Company Number: None

PATIENT
  Age: 49 Year
  Sex: Male

DRUGS (2)
  1. TACROLIMUS CAP 1MG [Suspect]
     Active Substance: TACROLIMUS
     Dates: start: 201807
  2. MYCOPHENOLATE 500MG [Concomitant]
     Active Substance: MYCOPHENOLIC ACID

REACTIONS (2)
  - Tremor [None]
  - Agitation [None]

NARRATIVE: CASE EVENT DATE: 20180830
